FAERS Safety Report 13156478 (Version 1)
Quarter: 2017Q1

REPORT INFORMATION
  Report Type: Spontaneous
  Country: US (occurrence: US)
  Receive Date: 20170126
  Receipt Date: 20170126
  Transmission Date: 20170428
  Serious: Yes (Other)
  Sender: FDA-Public Use
  Company Number: US-ELI_LILLY_AND_COMPANY-US201608004877

PATIENT
  Sex: Female

DRUGS (1)
  1. CYMBALTA [Suspect]
     Active Substance: DULOXETINE HYDROCHLORIDE
     Indication: DEPRESSION
     Dosage: 60 MG, QD
     Route: 048
     Dates: start: 200512

REACTIONS (9)
  - Hyperhidrosis [Unknown]
  - Dysphoria [Unknown]
  - Sensory disturbance [Unknown]
  - Suicidal ideation [Unknown]
  - Affect lability [Unknown]
  - Nausea [Unknown]
  - Drug withdrawal syndrome [Unknown]
  - Vomiting [Unknown]
  - Headache [Unknown]
